FAERS Safety Report 24294312 (Version 2)
Quarter: 2024Q4

REPORT INFORMATION
  Report Type: Spontaneous
  Country: US (occurrence: US)
  Receive Date: 20240906
  Receipt Date: 20241002
  Transmission Date: 20250115
  Serious: Yes (Other)
  Sender: BRISTOL MYERS SQUIBB
  Company Number: US-BRISTOL-MYERS SQUIBB COMPANY-2024-141931

PATIENT
  Age: 46 Year
  Sex: Female
  Weight: 62 kg

DRUGS (3)
  1. APIXABAN [Suspect]
     Active Substance: APIXABAN
     Indication: Product used for unknown indication
  2. TUKYSA [Suspect]
     Active Substance: TUCATINIB
     Indication: Breast cancer
     Route: 048
     Dates: start: 202309, end: 202407
  3. HERCEPTIN [Concomitant]
     Active Substance: TRASTUZUMAB
     Indication: Product used for unknown indication

REACTIONS (1)
  - Neoplasm progression [Not Recovered/Not Resolved]

NARRATIVE: CASE EVENT DATE: 20240421
